FAERS Safety Report 23760880 (Version 1)
Quarter: 2024Q2

REPORT INFORMATION
  Report Type: Spontaneous
  Country: US (occurrence: US)
  Receive Date: 20240419
  Receipt Date: 20240419
  Transmission Date: 20240715
  Serious: No
  Sender: FDA-Public Use
  Company Number: US-Intersect Ent, Inc.-2155752

PATIENT
  Sex: Female

DRUGS (1)
  1. SINUVA [Suspect]
     Active Substance: MOMETASONE FUROATE
     Route: 006

REACTIONS (3)
  - Hypertension [Unknown]
  - Upper-airway cough syndrome [Unknown]
  - Cough [Unknown]
